FAERS Safety Report 8113176-X (Version None)
Quarter: 2012Q1

REPORT INFORMATION
  Report Type: 
  Country: None (occurrence: None)
  Receive Date: 20120203
  Receipt Date: 20120123
  Transmission Date: 20120608
  Serious: Yes (Other)
  Sender: FDA-Public Use
  Company Number: PHHY2012PA005078

PATIENT
  Age: 51 Year
  Sex: Male

DRUGS (3)
  1. ZYLOPRIM [Concomitant]
  2. COREG [Concomitant]
  3. DIOVAN [Suspect]
     Indication: HYPERTENSION
     Dosage: 160 MG, UNK
     Dates: end: 20090901

REACTIONS (9)
  - CEREBRAL INFARCTION [None]
  - HEADACHE [None]
  - BLOOD PRESSURE INCREASED [None]
  - EPILEPSY [None]
  - HYPOKINESIA [None]
  - CAROTID ARTERIOSCLEROSIS [None]
  - HYPERTENSIVE CARDIOMYOPATHY [None]
  - CEREBROVASCULAR ACCIDENT [None]
  - APHASIA [None]
